FAERS Safety Report 15483066 (Version 1)
Quarter: 2018Q4

REPORT INFORMATION
  Report Type: Spontaneous
  Country: US (occurrence: US)
  Receive Date: 20181010
  Receipt Date: 20181010
  Transmission Date: 20190205
  Serious: No
  Sender: FDA-Public Use
  Company Number: US-BIOCOMPATIBLES UK LTD-2017BTG01457

PATIENT
  Age: 29 Year
  Sex: Male

DRUGS (2)
  1. CROFAB [Suspect]
     Active Substance: CROTALIDAE POLYVALENT IMMUNE FAB (OVINE)
     Dosage: 125 ML/HR, 6 VIALS
     Route: 065
     Dates: start: 20160922, end: 20160923
  2. CROFAB [Suspect]
     Active Substance: CROTALIDAE POLYVALENT IMMUNE FAB (OVINE)
     Indication: SNAKE BITE
     Dosage: 25 ML/HOUR X 10 MINUTES, 4 VIALS
     Route: 065
     Dates: start: 20160922, end: 20160923

REACTIONS (5)
  - Inappropriate schedule of product administration [Unknown]
  - Rash [Recovered/Resolved]
  - Incorrect product administration duration [Unknown]
  - Urticaria [Recovered/Resolved]
  - Pruritus [Recovered/Resolved]

NARRATIVE: CASE EVENT DATE: 20160922
